FAERS Safety Report 6382780-1 (Version None)
Quarter: 2009Q3

REPORT INFORMATION
  Report Type: 
  Country: None (occurrence: None)
  Receive Date: 20090928
  Receipt Date: 20090928
  Transmission Date: 20100115
  Serious: Yes (Other)
  Sender: FDA-Public Use
  Company Number: None

PATIENT
  Age: 57 Year
  Sex: Male
  Weight: 130.6 kg

DRUGS (2)
  1. LYRICA [Suspect]
     Indication: INTERVERTEBRAL DISC PROTRUSION
     Dosage: 100MG Q 6HR PO
     Route: 048
     Dates: start: 20090903, end: 20090904
  2. LYRICA [Suspect]
     Indication: NEURALGIA
     Dosage: 100MG Q 6HR PO
     Route: 048
     Dates: start: 20090903, end: 20090904

REACTIONS (5)
  - ANGIOEDEMA [None]
  - CHEST DISCOMFORT [None]
  - HEADACHE [None]
  - OEDEMA PERIPHERAL [None]
  - VASODILATATION [None]
